FAERS Safety Report 13120880 (Version 1)
Quarter: 2017Q1

REPORT INFORMATION
  Report Type: Spontaneous
  Country: US (occurrence: US)
  Receive Date: 20170113
  Receipt Date: 20170113
  Transmission Date: 20170428
  Serious: Yes (Death)
  Sender: FDA-Public Use
  Company Number: None

PATIENT
  Age: 63 Year
  Sex: Male

DRUGS (1)
  1. KEYTRUDA [Suspect]
     Active Substance: PEMBROLIZUMAB
     Indication: OROPHARYNGEAL CANCER
     Dosage: ?          OTHER FREQUENCY:EVERY 3 WEEKS;OTHER ROUTE:INFUSED?

REACTIONS (1)
  - Death [None]

NARRATIVE: CASE EVENT DATE: 20161224
